FAERS Safety Report 4530581-9 (Version None)
Quarter: 2004Q4

REPORT INFORMATION
  Report Type: 
  Country: None (occurrence: None)
  Receive Date: 20041216
  Receipt Date: 20041216
  Transmission Date: 20050328
  Serious: Yes (Life-Threatening, Hospitalization)
  Sender: FDA-Public Use
  Company Number: None

PATIENT
  Age: 80 Year
  Sex: Female
  Weight: 61.2356 kg

DRUGS (2)
  1. AVANDIA [Suspect]
     Indication: DIABETES MELLITUS
     Dosage: 8 MG ONE DAILY
     Dates: start: 20040601, end: 20041123
  2. ACTOS [Suspect]
     Dates: start: 20011101, end: 20040601

REACTIONS (7)
  - COUGH [None]
  - JOINT SWELLING [None]
  - OEDEMA PERIPHERAL [None]
  - PULMONARY OEDEMA [None]
  - RHINORRHOEA [None]
  - SINUS HEADACHE [None]
  - WEIGHT INCREASED [None]
